FAERS Safety Report 16552487 (Version 1)
Quarter: 2019Q3

REPORT INFORMATION
  Report Type: Spontaneous
  Country: US (occurrence: US)
  Receive Date: 20190710
  Receipt Date: 20190710
  Transmission Date: 20191004
  Serious: Yes (Other)
  Sender: FDA-Public Use
  Company Number: US-CASPER PHARMA LLC-2019CAS000323

PATIENT
  Sex: Female

DRUGS (1)
  1. PENICILLIN G BENZATHINE [Suspect]
     Active Substance: PENICILLIN G BENZATHINE
     Indication: PNEUMONIA
     Dosage: UNK
     Route: 030

REACTIONS (2)
  - Joint dislocation [Recovered/Resolved]
  - Muscle fibrosis [Recovered/Resolved]
